FAERS Safety Report 7755508-8 (Version None)
Quarter: 2011Q3

REPORT INFORMATION
  Report Type: 
  Country: None (occurrence: None)
  Receive Date: 20110916
  Receipt Date: 20110901
  Transmission Date: 20111222
  Serious: Yes (Hospitalization)
  Sender: FDA-Public Use
  Company Number: JP-NOVOPROD-334417

PATIENT

DRUGS (1)
  1. NORDITROPIN NORDIFLEX [Suspect]
     Indication: BODY HEIGHT BELOW NORMAL
     Dosage: 3 MG, QW
     Route: 058
     Dates: start: 20100812

REACTIONS (1)
  - EPILEPSY [None]
